FAERS Safety Report 10036691 (Version 3)
Quarter: 2014Q2

REPORT INFORMATION
  Report Type: Spontaneous
  Country: US (occurrence: US)
  Receive Date: 20140326
  Receipt Date: 20140418
  Transmission Date: 20141212
  Serious: No
  Sender: FDA-Public Use
  Company Number: US-BIOGENIDEC-2014BI028070

PATIENT
  Age: 41 Year
  Sex: Female

DRUGS (1)
  1. TYSABRI [Suspect]
     Indication: MULTIPLE SCLEROSIS
     Route: 042
     Dates: start: 20090121

REACTIONS (4)
  - Rash generalised [Not Recovered/Not Resolved]
  - Prescribed underdose [Recovered/Resolved]
  - Rash [Not Recovered/Not Resolved]
  - Urticaria [Recovered/Resolved]
